FAERS Safety Report 9915664 (Version 1)
Quarter: 2014Q1

REPORT INFORMATION
  Report Type: Spontaneous
  Country: GR (occurrence: None)
  Receive Date: 20140218
  Receipt Date: 20140218
  Transmission Date: 20141002
  Serious: Yes (Other)
  Sender: FDA-Public Use
  Company Number: 2014P1001095

PATIENT
  Age: 53 Year
  Sex: Male

DRUGS (1)
  1. LEVETIRACETAM [Suspect]
     Dates: start: 20130814

REACTIONS (2)
  - Drug reaction with eosinophilia and systemic symptoms [None]
  - Rectal haemorrhage [None]
